FAERS Safety Report 17116104 (Version 2)
Quarter: 2020Q3

REPORT INFORMATION
  Report Type: Spontaneous
  Country: US (occurrence: US)
  Receive Date: 20191205
  Receipt Date: 20200928
  Transmission Date: 20201102
  Serious: Yes (Hospitalization)
  Sender: FDA-Public Use
  Company Number: US-ROCHE-2487344

PATIENT
  Age: 53 Year
  Sex: Female

DRUGS (12)
  1. CETIRIZINE [Concomitant]
     Active Substance: CETIRIZINE HYDROCHLORIDE
  2. AMLODIPINE [Concomitant]
     Active Substance: AMLODIPINE BESYLATE
  3. FUROSEMIDE. [Concomitant]
     Active Substance: FUROSEMIDE
  4. GABAPENTIN. [Concomitant]
     Active Substance: GABAPENTIN
  5. PANTOPRAZOLE [Concomitant]
     Active Substance: PANTOPRAZOLE
  6. LORAZEPAM. [Concomitant]
     Active Substance: LORAZEPAM
  7. ROPINIROLE. [Concomitant]
     Active Substance: ROPINIROLE
  8. ESBRIET [Suspect]
     Active Substance: PIRFENIDONE
     Indication: IDIOPATHIC PULMONARY FIBROSIS
     Dosage: 3 TABLETS, ONGOING:YES
     Route: 048
     Dates: start: 20190709
  9. FLOVENT [Concomitant]
     Active Substance: FLUTICASONE PROPIONATE
  10. PRAVASTATIN. [Concomitant]
     Active Substance: PRAVASTATIN
  11. PAZEO [Concomitant]
     Active Substance: OLOPATADINE HYDROCHLORIDE
  12. DICLOFENAC [Concomitant]
     Active Substance: DICLOFENAC

REACTIONS (1)
  - Dyspnoea [Unknown]

NARRATIVE: CASE EVENT DATE: 202008
